FAERS Safety Report 14293479 (Version 3)
Quarter: 2018Q3

REPORT INFORMATION
  Report Type: Spontaneous
  Country: BR (occurrence: BR)
  Receive Date: 20171215
  Receipt Date: 20180725
  Transmission Date: 20181010
  Serious: Yes (Hospitalization, Other)
  Sender: FDA-Public Use
  Company Number: BR-ROCHE-2036710

PATIENT
  Age: 67 Year
  Sex: Female

DRUGS (2)
  1. GAZYVA [Suspect]
     Active Substance: OBINUTUZUMAB
     Indication: CHRONIC LYMPHOCYTIC LEUKAEMIA
     Route: 042
     Dates: start: 20171018
  2. CHLORAMBUCIL [Suspect]
     Active Substance: CHLORAMBUCIL
     Indication: CHRONIC LYMPHOCYTIC LEUKAEMIA
     Route: 065

REACTIONS (21)
  - Haemorrhage [Unknown]
  - Upper limb fracture [Unknown]
  - Neutrophil count decreased [Not Recovered/Not Resolved]
  - Toxicity to various agents [Unknown]
  - Sciatic nerve neuropathy [Not Recovered/Not Resolved]
  - Laryngeal oedema [Recovered/Resolved]
  - Intentional product use issue [Unknown]
  - Hepatomegaly [Not Recovered/Not Resolved]
  - Pancytopenia [Recovered/Resolved]
  - White blood cell count increased [Not Recovered/Not Resolved]
  - Polycythaemia [Unknown]
  - Platelet count decreased [Recovering/Resolving]
  - Fall [Unknown]
  - Ear pruritus [Unknown]
  - Haemoglobin decreased [Unknown]
  - Asphyxia [Unknown]
  - Ear disorder [Unknown]
  - Feeling hot [Unknown]
  - Dyspnoea [Unknown]
  - Weight decreased [Unknown]
  - Splenomegaly [Not Recovered/Not Resolved]

NARRATIVE: CASE EVENT DATE: 20171018
